FAERS Safety Report 8391662-5 (Version None)
Quarter: 2012Q2

REPORT INFORMATION
  Report Type: 
  Country: None (occurrence: None)
  Receive Date: 20120529
  Receipt Date: 20120524
  Transmission Date: 20120825
  Serious: Yes (Death, Hospitalization, Other)
  Sender: FDA-Public Use
  Company Number: JP-SANOFI-AVENTIS-2012SA035668

PATIENT
  Age: 77 Year
  Sex: Male

DRUGS (2)
  1. ERLOTINIB HYDROCHLORIDE [Suspect]
     Indication: LUNG ADENOCARCINOMA
     Route: 048
     Dates: start: 20120216, end: 20120223
  2. DOCETAXEL [Suspect]
     Indication: LUNG ADENOCARCINOMA
     Dosage: FORM- I/V DRIP OF DOCETAXEL INJECTION WAS ADMINISTERED TABLET
     Route: 041
     Dates: start: 20120215

REACTIONS (7)
  - PLEURAL INFECTION [None]
  - ASTHENIA [None]
  - NEUTROPHIL COUNT DECREASED [None]
  - BRONCHIAL FISTULA [None]
  - GASTRIC ULCER HAEMORRHAGE [None]
  - ASPHYXIA [None]
  - PNEUMONIA ASPIRATION [None]
